FAERS Safety Report 17599499 (Version 1)
Quarter: 2020Q1

REPORT INFORMATION
  Report Type: Spontaneous
  Country: US (occurrence: US)
  Receive Date: 20200330
  Receipt Date: 20200330
  Transmission Date: 20200409
  Serious: Yes (Hospitalization)
  Sender: FDA-Public Use
  Company Number: US-JNJFOC-20200338050

PATIENT
  Age: 73 Year
  Sex: Male
  Weight: 64.92 kg

DRUGS (2)
  1. XARELTO [Suspect]
     Active Substance: RIVAROXABAN
     Indication: PULMONARY EMBOLISM
     Route: 048
     Dates: start: 202003, end: 202003
  2. XARELTO [Suspect]
     Active Substance: RIVAROXABAN
     Route: 048
     Dates: start: 202003

REACTIONS (3)
  - Epistaxis [Recovering/Resolving]
  - Penile haemorrhage [Recovered/Resolved]
  - Mouth haemorrhage [Recovering/Resolving]

NARRATIVE: CASE EVENT DATE: 202003
